FAERS Safety Report 18035221 (Version 1)
Quarter: 2020Q3

REPORT INFORMATION
  Report Type: Other
  Country: US (occurrence: US)
  Receive Date: 20200717
  Receipt Date: 20200717
  Transmission Date: 20201103
  Serious: Yes (Other)
  Sender: FDA-Public Use
  Company Number: US-ROCHE-2642497

PATIENT
  Age: 71 Year
  Sex: Female
  Weight: 45.85 kg

DRUGS (4)
  1. OCREVUS [Suspect]
     Active Substance: OCRELIZUMAB
     Indication: PRIMARY PROGRESSIVE MULTIPLE SCLEROSIS
     Route: 042
     Dates: start: 201901
  2. GLUCOSAMINE + CHONDROITIN COMPLEX [Concomitant]
     Active Substance: CHONDROITIN SULFATE (BOVINE)\GLUCOSAMINE HYDROCHLORIDE
     Indication: PAIN
     Dosage: 2 PILLS ONCE A DAY STARTED ABOUT 1 YEAR AGO?1500 MG GLUCOSAMINE/1200 MG CHONDROITIN
     Route: 048
  3. THERATEARS [Concomitant]
     Active Substance: CARBOXYMETHYLCELLULOSE SODIUM
     Indication: DRY EYE
     Dosage: 1 DROP BOTH EYES STARTED ABOUT 2 YEARS AGO
     Route: 047
  4. VITAMIN B12 [Concomitant]
     Active Substance: CYANOCOBALAMIN
     Dosage: 1 PILL ONCE PER DAY STARTED ABOUT 1 YEAR AGO
     Route: 060

REACTIONS (7)
  - Dyspnoea [Not Recovered/Not Resolved]
  - Gingivitis [Not Recovered/Not Resolved]
  - Fatigue [Recovered/Resolved]
  - Gingival disorder [Not Recovered/Not Resolved]
  - Pyrexia [Recovered/Resolved]
  - Osteonecrosis [Not Recovered/Not Resolved]
  - Peroneal nerve palsy [Not Recovered/Not Resolved]

NARRATIVE: CASE EVENT DATE: 202002
